FAERS Safety Report 7742818-3 (Version None)
Quarter: 2011Q3

REPORT INFORMATION
  Report Type: 
  Country: None (occurrence: None)
  Receive Date: 20110912
  Receipt Date: 20110904
  Transmission Date: 20111222
  Serious: Yes (Other)
  Sender: FDA-Public Use
  Company Number: GB-JNJFOC-20110813326

PATIENT
  Age: 48 Year
  Sex: Male
  Weight: 84.82 kg

DRUGS (1)
  1. KETOCONAZOLE [Suspect]
     Indication: PRODUCT USED FOR UNKNOWN INDICATION
     Route: 065
     Dates: start: 20110811

REACTIONS (1)
  - DERMATITIS CONTACT [None]
